FAERS Safety Report 8920721 (Version 2)
Quarter: 2012Q4

REPORT INFORMATION
  Report Type: 
  Country: US (occurrence: US)
  Receive Date: 20121121
  Receipt Date: 20121204
  Transmission Date: 20130627
  Serious: No
  Sender: FDA-Public Use
  Company Number: US-009507513-1211USA008554

PATIENT
  Age: 60 Year
  Sex: Male
  Weight: 70.3 kg

DRUGS (1)
  1. CLARITIN REDITABS [Suspect]
     Indication: RHINORRHOEA
     Dosage: 10 mg, qd
     Route: 048
     Dates: start: 20120908, end: 20120909

REACTIONS (2)
  - Condition aggravated [Not Recovered/Not Resolved]
  - Drug ineffective [Unknown]
